FAERS Safety Report 9207925 (Version 1)
Quarter: 2013Q2

REPORT INFORMATION
  Report Type: Spontaneous
  Country: US (occurrence: US)
  Receive Date: 20130403
  Receipt Date: 20130403
  Transmission Date: 20140414
  Serious: No
  Sender: FDA-Public Use
  Company Number: US-BAYER-2013-041857

PATIENT
  Age: 40 Year
  Sex: Female

DRUGS (5)
  1. BETASERON [Suspect]
     Dosage: 0.25 MG, QOD
     Route: 058
     Dates: end: 2010
  2. HYDROCHLOROTHIAZID [Concomitant]
     Dosage: 12.5 MG, UNK
  3. LOSARTAN POTASSIUM [Concomitant]
     Dosage: 25 MG, UNK
  4. MULTIVITAMIN [Concomitant]
  5. VITAMIN D [Concomitant]
     Dosage: 2000 U, UNK

REACTIONS (1)
  - Injection site reaction [Unknown]
